FAERS Safety Report 17203070 (Version 2)
Quarter: 2020Q1

REPORT INFORMATION
  Report Type: Spontaneous
  Country: PL (occurrence: PL)
  Receive Date: 20191226
  Receipt Date: 20200103
  Transmission Date: 20200409
  Serious: Yes (Hospitalization, Other)
  Sender: FDA-Public Use
  Company Number: PL-ASTRAZENECA-2019SF84769

PATIENT
  Sex: Female

DRUGS (3)
  1. FULVESTRANT. [Suspect]
     Active Substance: FULVESTRANT
     Dosage: UNK, CYCLIC
     Route: 030
  2. IBRANCE [Suspect]
     Active Substance: PALBOCICLIB
     Dosage: 125 MG, CYCLIC125.0MG UNKNOWN
     Route: 048
  3. LETROZOLE. [Suspect]
     Active Substance: LETROZOLE
     Route: 048

REACTIONS (3)
  - Pleural effusion [Unknown]
  - Neutropenia [Unknown]
  - Dyspnoea [Unknown]
